FAERS Safety Report 6130427-1 (Version None)
Quarter: 2009Q1

REPORT INFORMATION
  Report Type: 
  Country: None (occurrence: None)
  Receive Date: 20090324
  Receipt Date: 20090316
  Transmission Date: 20090719
  Serious: Yes (Other)
  Sender: FDA-Public Use
  Company Number: GB-GILEAD-2009-0020403

PATIENT
  Age: 39 Year
  Sex: Male
  Weight: 71.2 kg

DRUGS (8)
  1. VIREAD [Suspect]
     Indication: HIV INFECTION
     Route: 048
     Dates: start: 20080501, end: 20081231
  2. VIREAD [Suspect]
     Indication: KAPOSI'S SARCOMA
  3. REYATAZ [Suspect]
     Indication: HIV INFECTION
     Route: 048
     Dates: start: 20080808, end: 20081231
  4. REYATAZ [Suspect]
     Indication: KAPOSI'S SARCOMA
  5. NORVIR [Suspect]
     Indication: HIV INFECTION
     Route: 048
     Dates: start: 20080808, end: 20081231
  6. NORVIR [Suspect]
     Indication: KAPOSI'S SARCOMA
  7. LAMIVUDINE [Concomitant]
     Indication: HIV INFECTION
     Route: 048
     Dates: start: 20080501, end: 20081231
  8. LAMIVUDINE [Concomitant]
     Indication: KAPOSI'S SARCOMA

REACTIONS (2)
  - JAUNDICE [None]
  - PRURITUS [None]
